FAERS Safety Report 8870545 (Version 1)
Quarter: 2012Q4

REPORT INFORMATION
  Report Type: 
  Country: US (occurrence: US)
  Receive Date: 20121023
  Receipt Date: 20121023
  Transmission Date: 20130627
  Serious: No
  Sender: FDA-Public Use
  Company Number: US-AMGEN-USASP2012023125

PATIENT
  Sex: Male
  Weight: 113.38 kg

DRUGS (4)
  1. ENBREL [Suspect]
     Indication: PRODUCT USED FOR UNKNOWN INDICATION
     Dosage: 50 mg, qwk
     Route: 058
  2. VITAMIN C                          /00008001/ [Concomitant]
     Dosage: 500 mg, UNK
  3. ACCUPRIL [Concomitant]
     Dosage: 5 mg, UNK
  4. AMLODIPINE [Concomitant]
     Dosage: 5 mg, UNK

REACTIONS (2)
  - Influenza [Unknown]
  - Drug ineffective [Unknown]
